FAERS Safety Report 8180377 (Version 2)
Quarter: 2013Q4

REPORT INFORMATION
  Report Type: Spontaneous
  Country: US (occurrence: US)
  Receive Date: 20111013
  Receipt Date: 20131111
  Transmission Date: 20140711
  Serious: Yes (Other)
  Sender: FDA-Public Use
  Company Number: US-ROCHE-1002370

PATIENT
  Sex: Male
  Weight: 49.94 kg

DRUGS (4)
  1. ACCUTANE [Suspect]
     Indication: ACNE
     Route: 065
     Dates: start: 200808, end: 200904
  2. ACCUTANE [Suspect]
     Route: 065
     Dates: start: 20080714, end: 200812
  3. SOTRET [Suspect]
     Indication: ACNE
     Route: 065
     Dates: start: 200808, end: 200904
  4. AZATHIOPRINE [Concomitant]
     Indication: COLITIS ULCERATIVE

REACTIONS (3)
  - Colitis ulcerative [Unknown]
  - Inflammatory bowel disease [Unknown]
  - Anxiety [Unknown]
